FAERS Safety Report 5419808-9 (Version None)
Quarter: 2007Q3

REPORT INFORMATION
  Report Type: 
  Country: None (occurrence: None)
  Receive Date: 20070820
  Receipt Date: 20070808
  Transmission Date: 20080115
  Serious: Yes (Other)
  Sender: FDA-Public Use
  Company Number: US-PFIZER INC-2007065968

PATIENT
  Sex: Female
  Weight: 96.2 kg

DRUGS (9)
  1. DILANTIN [Suspect]
     Indication: CONVULSION
     Route: 048
  2. IRON [Concomitant]
     Route: 048
  3. COLACE [Concomitant]
     Route: 048
  4. VICODIN [Concomitant]
     Indication: PAIN
     Route: 048
  5. CIPRO [Concomitant]
     Route: 048
  6. RANITIDINE [Concomitant]
     Route: 048
  7. ATARAX [Concomitant]
     Route: 048
  8. TYLENOL [Concomitant]
     Indication: PYREXIA
     Route: 048
  9. CLARITIN [Concomitant]
     Route: 048

REACTIONS (13)
  - ANAEMIA [None]
  - ASTHENIA [None]
  - BLOOD PRESSURE INCREASED [None]
  - CONVULSION [None]
  - ELECTROLYTE IMBALANCE [None]
  - HEPATITIS [None]
  - LETHARGY [None]
  - LEUKOCYTOSIS [None]
  - MENTAL STATUS CHANGES [None]
  - NYSTAGMUS [None]
  - PO2 INCREASED [None]
  - STEVENS-JOHNSON SYNDROME [None]
  - TOXIC EPIDERMAL NECROLYSIS [None]
